FAERS Safety Report 5452126-1 (Version None)
Quarter: 2007Q3

REPORT INFORMATION
  Report Type: 
  Country: None (occurrence: None)
  Receive Date: 20070912
  Receipt Date: 20070830
  Transmission Date: 20080115
  Serious: Yes (Other)
  Sender: FDA-Public Use
  Company Number: 2007EN000214

PATIENT
  Age: 46 Year
  Sex: Female
  Weight: 77.1115 kg

DRUGS (10)
  1. OPANA ER [Suspect]
     Indication: ABDOMINAL PAIN
     Dosage: 20 MG; BID; 30 MG; BID
     Dates: start: 20070301, end: 20070401
  2. OPANA ER [Suspect]
     Indication: BACK PAIN
     Dosage: 20 MG; BID; 30 MG; BID
     Dates: start: 20070301, end: 20070401
  3. OPANA ER [Suspect]
     Indication: ABDOMINAL PAIN
     Dosage: 20 MG; BID; 30 MG; BID
     Dates: start: 20070401
  4. OPANA ER [Suspect]
     Indication: BACK PAIN
     Dosage: 20 MG; BID; 30 MG; BID
     Dates: start: 20070401
  5. MARINOL [Concomitant]
  6. ROXICODONE [Concomitant]
  7. PRILOSEC [Concomitant]
  8. BENEFIBER [Concomitant]
  9. CORGARD [Concomitant]
  10. ESTRADERM [Concomitant]

REACTIONS (21)
  - ABDOMINAL DISTENSION [None]
  - CONSTIPATION [None]
  - CRYING [None]
  - DECREASED ACTIVITY [None]
  - DEPRESSION [None]
  - DYSARTHRIA [None]
  - FATIGUE [None]
  - FEAR [None]
  - GASTROINTESTINAL DISORDER [None]
  - HYPOTHYROIDISM [None]
  - INADEQUATE ANALGESIA [None]
  - MEMORY IMPAIRMENT [None]
  - MENTAL DISORDER [None]
  - NEUROLOGICAL SYMPTOM [None]
  - NIGHTMARE [None]
  - SCREAMING [None]
  - SPEECH DISORDER [None]
  - SUICIDAL IDEATION [None]
  - TERMINAL STATE [None]
  - TREMOR [None]
  - VISUAL ACUITY REDUCED [None]
